FAERS Safety Report 21694617 (Version 4)
Quarter: 2023Q1

REPORT INFORMATION
  Report Type: Spontaneous
  Country: IN (occurrence: IN)
  Receive Date: 20221207
  Receipt Date: 20230117
  Transmission Date: 20230418
  Serious: Yes (Death, Life-Threatening, Hospitalization, Other)
  Sender: FDA-Public Use
  Company Number: IN-PFIZER INC-PV202200033011

PATIENT
  Age: 41 Year
  Sex: Female

DRUGS (8)
  1. PALBOCICLIB [Suspect]
     Active Substance: PALBOCICLIB
     Dosage: (ONCE DAILY, 21 DAYS ON/7 DAYS OFF OF 28 DAYS CYCLE)
     Route: 048
     Dates: start: 20211129
  2. PALBOCICLIB [Suspect]
     Active Substance: PALBOCICLIB
     Dosage: 100 MG, 1X/DAY
     Route: 048
  3. FEMARA [Concomitant]
     Active Substance: LETROZOLE
     Indication: Breast cancer
     Dosage: UNK
     Dates: start: 20211119
  4. FEMARA [Concomitant]
     Active Substance: LETROZOLE
     Dosage: 2.5 MG, 1X/DAY
  5. CALCIUM\CHOLECALCIFEROL [Concomitant]
     Active Substance: CALCIUM\CHOLECALCIFEROL
     Dosage: 500 MG, 2X/DAY FOR 3 MONTHS
  6. TORFLASH [Concomitant]
     Dosage: 60000 IU, MONTHLY FOR 3 MONTHS
  7. ZOLEDRONIC ACID [Concomitant]
     Active Substance: ZOLEDRONIC ACID
     Indication: Breast cancer
     Dosage: UNK
     Dates: start: 20211119
  8. ZOLEDRONIC ACID [Concomitant]
     Active Substance: ZOLEDRONIC ACID
     Dosage: 4 MG, MONTHLY FOR 3 MONTHS

REACTIONS (15)
  - Hepatic failure [Fatal]
  - Neoplasm progression [Fatal]
  - Pancytopenia [Unknown]
  - Hepatic infarction [Unknown]
  - Renal infarct [Unknown]
  - Metabolic acidosis [Unknown]
  - Hypotension [Unknown]
  - Hepatitis [Unknown]
  - Neoplasm recurrence [Unknown]
  - White blood cell count decreased [Unknown]
  - Red blood cell count decreased [Unknown]
  - Haemoglobin decreased [Unknown]
  - Malaise [Unknown]
  - Nausea [Unknown]
  - Asthenia [Unknown]

NARRATIVE: CASE EVENT DATE: 20221101
